FAERS Safety Report 9752135 (Version 1)
Quarter: 2013Q4

REPORT INFORMATION
  Report Type: Spontaneous
  Country: FR (occurrence: FR)
  Receive Date: 20131213
  Receipt Date: 20131213
  Transmission Date: 20140711
  Serious: Yes (Other)
  Sender: FDA-Public Use
  Company Number: FR-JNJFOC-20131114227

PATIENT
  Age: 51 Year
  Sex: Female

DRUGS (12)
  1. ACTIFED LP ALLERGIC RHINITIS [Suspect]
     Route: 048
  2. ACTIFED LP ALLERGIC RHINITIS [Suspect]
     Indication: NASAL CONGESTION
     Route: 048
     Dates: end: 2009
  3. ACTIFED JOUR ET NUIT [Suspect]
     Indication: PRODUCT USED FOR UNKNOWN INDICATION
     Route: 065
     Dates: end: 2009
  4. ACTIFED RHUME [Suspect]
     Indication: NASAL CONGESTION
     Route: 065
     Dates: end: 2009
  5. RHINOFLUIMUCIL [Suspect]
     Indication: NASAL CONGESTION
     Route: 045
  6. RHINADVIL [Suspect]
     Indication: NASAL CONGESTION
     Route: 048
  7. DOLI RHUME [Suspect]
     Indication: NASAL CONGESTION
     Route: 048
  8. RINUTAN [Suspect]
     Indication: NASAL CONGESTION
     Route: 065
  9. ADEPAL [Suspect]
     Indication: PRODUCT USED FOR UNKNOWN INDICATION
     Route: 048
  10. DIANE 35 [Suspect]
     Indication: CONTRACEPTION
     Route: 048
  11. JASMINE [Suspect]
     Indication: PRODUCT USED FOR UNKNOWN INDICATION
     Route: 048
  12. JASMINELLE [Suspect]
     Indication: PRODUCT USED FOR UNKNOWN INDICATION
     Route: 048

REACTIONS (1)
  - Pulmonary arterial hypertension [Not Recovered/Not Resolved]
